FAERS Safety Report 9177852 (Version 4)
Quarter: 2013Q1

REPORT INFORMATION
  Report Type: Spontaneous
  Country: US (occurrence: US)
  Receive Date: 20130321
  Receipt Date: 20130329
  Transmission Date: 20140127
  Serious: Yes (Death, Hospitalization, Other)
  Sender: FDA-Public Use
  Company Number: US-JNJFOC-20130312996

PATIENT
  Age: 78 Year
  Sex: Female

DRUGS (24)
  1. XARELTO [Suspect]
     Indication: PULMONARY EMBOLISM
     Route: 048
     Dates: start: 20130208, end: 20130209
  2. ASPIRIN [Suspect]
     Indication: PULMONARY EMBOLISM
     Route: 048
  3. PLAVIX [Suspect]
     Indication: PULMONARY EMBOLISM
     Route: 048
  4. ZOCOR [Concomitant]
     Route: 048
  5. RANITIDINE [Concomitant]
     Route: 048
  6. LANTUS [Concomitant]
     Dosage: 14 UNOITS IN SKIN AT NIGHT
     Route: 065
  7. VICODIN [Concomitant]
     Route: 048
  8. BIOTIN [Concomitant]
     Route: 048
  9. CALCIUM CITRATE WITH VITAMIN D [Concomitant]
     Dosage: 600-200 MG UNIT TABLETS
     Route: 048
  10. CARDIZEM CD [Concomitant]
     Route: 048
  11. COLACE [Concomitant]
     Route: 048
  12. FLONASE [Concomitant]
     Route: 045
  13. ADVAIR [Concomitant]
     Route: 055
  14. LASIX [Concomitant]
     Route: 048
  15. HUMULIN R [Concomitant]
     Route: 065
  16. ISOSORBIDE MONONITRATE [Concomitant]
     Route: 048
  17. ACIDOPHILUS [Concomitant]
     Route: 048
  18. XOPENEX [Concomitant]
     Dosage: 1-2 PUFFS INTO LUNGS EVERY 4 HOURS AS NEEDED
     Route: 055
  19. SYNTHROID [Concomitant]
     Route: 048
  20. CLARITIN [Concomitant]
     Route: 048
  21. COZAAR [Concomitant]
     Route: 048
  22. MULTIVITAMINS [Concomitant]
     Route: 048
  23. NITROSTAT [Concomitant]
     Indication: CHEST PAIN
     Dosage: PLACE 1 TABLET (04 MG TAOTAL) UNDER TONGUE EVERY 5 MINUTES AS NEEDED
     Route: 060
     Dates: start: 20130114, end: 20130223
  24. SPIRIVA [Concomitant]
     Route: 055

REACTIONS (3)
  - Death [Fatal]
  - Eye haemorrhage [Unknown]
  - Haemorrhage [Unknown]
